FAERS Safety Report 4602649-X (Version None)
Quarter: 2005Q1

REPORT INFORMATION
  Report Type: 
  Country: None (occurrence: None)
  Receive Date: 20050307
  Receipt Date: 20050201
  Transmission Date: 20050727
  Serious: Yes (Other)
  Sender: FDA-Public Use
  Company Number: S05-FRA-00910-01

PATIENT
  Age: 83 Year
  Sex: Female

DRUGS (3)
  1. EBIXA (MEMANTINE) [Suspect]
     Indication: DEMENTIA
     Dosage: 15 MG QD PO
     Route: 048
     Dates: start: 20041115, end: 20041209
  2. ATHYMIL (MIANSERIN HYDROCHLORIDE) [Concomitant]
  3. DUPHALAC [Concomitant]

REACTIONS (1)
  - DISTURBANCE IN ATTENTION [None]
